FAERS Safety Report 6156719-8 (Version None)
Quarter: 2009Q2

REPORT INFORMATION
  Report Type: 
  Country: None (occurrence: None)
  Receive Date: 20090416
  Receipt Date: 20090319
  Transmission Date: 20091009
  Serious: No
  Sender: FDA-Public Use
  Company Number: US-BAYER-200910884BCC

PATIENT
  Age: 75 Year
  Sex: Female
  Weight: 136 kg

DRUGS (4)
  1. ALEVE (CAPLET) [Suspect]
     Indication: ARTHRALGIA
     Dosage: TOTAL DAILY DOSE: 440 MG  UNIT DOSE: 220 MG
     Dates: start: 20090319, end: 20090319
  2. ACCUPRIL [Concomitant]
  3. DIOVAN [Concomitant]
  4. LIPITOR [Concomitant]

REACTIONS (1)
  - ARTHRALGIA [None]
